FAERS Safety Report 8942531 (Version 2)
Quarter: 2012Q4

REPORT INFORMATION
  Report Type: 
  Country: US (occurrence: US)
  Receive Date: 20121204
  Receipt Date: 20121214
  Transmission Date: 20130627
  Serious: Yes (Death, Hospitalization)
  Sender: FDA-Public Use
  Company Number: US-BAYER-2012-124473

PATIENT
  Age: 62 Year
  Sex: Male

DRUGS (2)
  1. STIVARGA [Suspect]
     Indication: COLON CANCER
     Dosage: 160 mg, QD
     Route: 048
     Dates: start: 20121105, end: 20121121
  2. STIVARGA [Suspect]
     Indication: COLON CANCER
     Dosage: (4)40mg tablets daily for 21 days on then 7 days off
     Route: 048
     Dates: start: 20121012

REACTIONS (4)
  - Death [Fatal]
  - Spinal compression fracture [Not Recovered/Not Resolved]
  - Blood bilirubin increased [Not Recovered/Not Resolved]
  - Cardiac disorder [Not Recovered/Not Resolved]
